FAERS Safety Report 17822062 (Version 4)
Quarter: 2021Q3

REPORT INFORMATION
  Report Type: Report from Study
  Country: US (occurrence: US)
  Receive Date: 20200526
  Receipt Date: 20210803
  Transmission Date: 20211014
  Serious: Yes (Hospitalization)
  Sender: FDA-Public Use
  Company Number: NVSC2020US140607

PATIENT
  Age: 9 Year
  Sex: Male

DRUGS (18)
  1. MERCAPTOPURINE. [Suspect]
     Active Substance: MERCAPTOPURINE
     Indication: ACUTE LYMPHOCYTIC LEUKAEMIA
     Dosage: 25 MG, QD (M11 D29?84)
     Route: 048
     Dates: start: 20200423, end: 20200511
  2. MERCAPTOPURINE. [Suspect]
     Active Substance: MERCAPTOPURINE
     Dosage: 25 MG, QD (M11 D29?84)
     Route: 048
     Dates: start: 20200521
  3. MULTI VITAMIN [Concomitant]
     Active Substance: VITAMINS
     Indication: VITAMIN SUPPLEMENTATION
     Dosage: 1 CHEWABLE TABLET, QD
     Route: 048
     Dates: start: 20171106
  4. PREDNISONE. [Concomitant]
     Active Substance: PREDNISONE
     Indication: ACUTE LYMPHOCYTIC LEUKAEMIA
     Dosage: 25 MILLIGRAM, QAM / 20 MILLIGRAM, QPM (M11 D29?33)
     Route: 048
     Dates: start: 20200424
  5. METHOTREXATE. [Suspect]
     Active Substance: METHOTREXATE
     Indication: ACUTE LYMPHOCYTIC LEUKAEMIA
     Dosage: 6.25 MG, ONCE WEEKLY ON THURS (M11 D29)
     Route: 048
     Dates: start: 20200423, end: 20200511
  6. SENNA [Concomitant]
     Active Substance: SENNA LEAF\SENNOSIDES\SENNOSIDES A AND B
     Dosage: 8.8 MG, QD PRN
     Route: 048
     Dates: start: 20170710
  7. VINCRISTINE [Concomitant]
     Active Substance: VINCRISTINE
     Indication: ACUTE LYMPHOCYTIC LEUKAEMIA
     Dosage: 1.7 MG, ONCE/SINGLE (M11 D29)
     Route: 042
     Dates: start: 20200423
  8. INC424A [Suspect]
     Active Substance: RUXOLITINIB
     Indication: ACUTE LYMPHOCYTIC LEUKAEMIA
     Dosage: 55 MG, BID (M11 D29?D42)
     Route: 048
     Dates: start: 20200423
  9. ALLOPURINOL. [Suspect]
     Active Substance: ALLOPURINOL
     Indication: CHEMOTHERAPY SIDE EFFECT PROPHYLAXIS
     Dosage: 50 MG, QD
     Route: 048
     Dates: start: 20191211
  10. MIRALAX [Concomitant]
     Active Substance: POLYETHYLENE GLYCOL 3350
     Indication: CONSTIPATION PROPHYLAXIS
     Dosage: 13 GRAM, 1?2 TIMES PER DAY
     Route: 048
     Dates: start: 20170227
  11. ZOFRAN [Concomitant]
     Active Substance: ONDANSETRON HYDROCHLORIDE
     Indication: VOMITING
  12. VITAMIIN C [Concomitant]
     Active Substance: ASCORBIC ACID
     Indication: VITAMIN SUPPLEMENTATION
     Dosage: 1 CHEWABLE TABLET, QD
     Route: 048
     Dates: start: 20171106
  13. ZOFRAN [Concomitant]
     Active Substance: ONDANSETRON HYDROCHLORIDE
     Indication: NAUSEA
     Dosage: 4 MG, Q8H, PRN
     Route: 048
     Dates: start: 20170509
  14. ROXICODONE [Concomitant]
     Active Substance: OXYCODONE HYDROCHLORIDE
     Indication: PAIN
     Dosage: 2.5 MILLIGRAM, Q6?8H, PRN
     Route: 048
     Dates: start: 20170804
  15. EMLA [Concomitant]
     Active Substance: LIDOCAINE\PRILOCAINE
     Indication: ANAESTHETIC PREMEDICATION
     Dosage: 2.5 G, PRN 1H PRIOR TO PAINFUL PROCEDURES
     Route: 061
     Dates: start: 20170223
  16. METHOTREXATE. [Suspect]
     Active Substance: METHOTREXATE
     Dosage: 6.25 MG, ONCE WEEKLY ON THURS (M11 D29)
     Route: 048
     Dates: start: 20200521
  17. BACTRIM [Concomitant]
     Active Substance: SULFAMETHOXAZOLE\TRIMETHOPRIM
     Indication: INFECTION PROPHYLAXIS
     Dosage: 40 MILLIGRAM, BID (MON/TUES ONLY)
     Route: 048
     Dates: start: 20170718
  18. SENNA [Concomitant]
     Active Substance: SENNA LEAF\SENNOSIDES\SENNOSIDES A AND B
     Indication: CONSTIPATION
     Dosage: 8.8 MG, QD PRN
     Route: 048
     Dates: start: 20170610

REACTIONS (1)
  - Febrile neutropenia [Recovered/Resolved]

NARRATIVE: CASE EVENT DATE: 20200511
